FAERS Safety Report 9103944 (Version 1)
Quarter: 2013Q1

REPORT INFORMATION
  Report Type: Spontaneous
  Country: GB (occurrence: None)
  Receive Date: 20130125
  Receipt Date: 20130125
  Transmission Date: 20140127
  Serious: Yes (Disabling)
  Sender: FDA-Public Use
  Company Number: 2013-00981

PATIENT
  Age: 21 Year
  Sex: Female
  Weight: 50 kg

DRUGS (1)
  1. CITALOPRAM HYDROBROMIDE (UNKNOWN) (CITALOPRAM HYDROBROMIDE) UNK, UNKUNK [Suspect]
     Indication: PRODUCT USED FOR UNKNOWN INDICATION
     Route: 048
     Dates: start: 20121219, end: 20121221

REACTIONS (3)
  - Musculoskeletal stiffness [None]
  - Movement disorder [None]
  - Parkinson^s disease [None]
